FAERS Safety Report 9813861 (Version 1)
Quarter: 2014Q1

REPORT INFORMATION
  Report Type: Spontaneous
  Country: US (occurrence: US)
  Receive Date: 20140113
  Receipt Date: 20140113
  Transmission Date: 20141002
  Serious: No
  Sender: FDA-Public Use
  Company Number: US-GILEAD-2011-0035874

PATIENT
  Sex: Male

DRUGS (2)
  1. TRUVADA [Suspect]
     Indication: HIV INFECTION
     Dates: start: 201007
  2. LOPINAVIR/RITONAVIR [Suspect]
     Indication: HIV INFECTION

REACTIONS (1)
  - Staphylococcal skin infection [Unknown]
